FAERS Safety Report 7084861-6 (Version None)
Quarter: 2010Q4

REPORT INFORMATION
  Report Type: 
  Country: None (occurrence: None)
  Receive Date: 20101103
  Receipt Date: 20101103
  Transmission Date: 20110411
  Serious: Yes (Life-Threatening)
  Sender: FDA-Public Use
  Company Number: None

PATIENT
  Age: 44 Year
  Sex: Female
  Weight: 51.2565 kg

DRUGS (1)
  1. BEANO 2 TABLETS GLAXOSMITHKLINE [Suspect]
     Indication: FLATULENCE
     Dosage: 2 TABLETS BEFORE MEAL  (ONE DOSE ONLY)

REACTIONS (2)
  - ASTHMA [None]
  - THROAT TIGHTNESS [None]
